FAERS Safety Report 9197592 (Version 1)
Quarter: 2013Q1

REPORT INFORMATION
  Report Type: Spontaneous
  Country: IT (occurrence: IT)
  Receive Date: 20130328
  Receipt Date: 20130328
  Transmission Date: 20140127
  Serious: Yes (Death, Hospitalization)
  Sender: FDA-Public Use
  Company Number: IT-GLAXOSMITHKLINE-B0878360A

PATIENT
  Age: 81 Year
  Sex: Female

DRUGS (15)
  1. SELEPARINA [Suspect]
     Indication: DEEP VEIN THROMBOSIS
     Dosage: 2UD PER DAY
     Route: 058
     Dates: start: 20120917, end: 20120923
  2. ARIXTRA [Suspect]
     Indication: DEEP VEIN THROMBOSIS
     Dosage: 1UD PER DAY
     Route: 058
     Dates: start: 20120923, end: 20121224
  3. ARIXTRA [Suspect]
     Indication: DEEP VEIN THROMBOSIS
     Dosage: 1UD PER DAY
     Route: 058
     Dates: start: 20121024, end: 20121024
  4. CLEXANE T [Suspect]
     Indication: DEEP VEIN THROMBOSIS
     Dosage: 1UD PER DAY
     Route: 058
     Dates: start: 20121025, end: 20121025
  5. ALLOPURINOL [Concomitant]
  6. FUROSEMIDE [Concomitant]
  7. SIVASTIN [Concomitant]
  8. FERRO-GRAD [Concomitant]
  9. LACTULOSE [Concomitant]
  10. PANTORC [Concomitant]
  11. LORANS [Concomitant]
  12. KCL RETARD [Concomitant]
  13. DILZENE [Concomitant]
  14. URBASON [Concomitant]
  15. TAZOCIN [Concomitant]
     Indication: PROPHYLAXIS
     Dosage: 1UD PER DAY

REACTIONS (2)
  - Intra-abdominal haematoma [Fatal]
  - Abdominal pain [Fatal]
